FAERS Safety Report 8191812-X (Version None)
Quarter: 2012Q1

REPORT INFORMATION
  Report Type: 
  Country: None (occurrence: None)
  Receive Date: 20120307
  Receipt Date: 20120228
  Transmission Date: 20120608
  Serious: Yes (Hospitalization, Other)
  Sender: FDA-Public Use
  Company Number: DE-BRISTOL-MYERS SQUIBB COMPANY-16314338

PATIENT
  Age: 43 Year
  Sex: Female
  Weight: 52 kg

DRUGS (5)
  1. CISPLATIN [Suspect]
     Indication: NON-SMALL CELL LUNG CANCER
     Route: 042
     Dates: start: 20110923, end: 20111206
  2. PACLITAXEL [Suspect]
     Indication: NON-SMALL CELL LUNG CANCER
     Route: 042
     Dates: start: 20110923, end: 20111103
  3. CERTOPARIN SODIUM [Concomitant]
     Indication: THROMBOSIS
     Route: 058
     Dates: start: 20110927
  4. VINORELBINE [Suspect]
     Indication: NON-SMALL CELL LUNG CANCER
     Route: 042
     Dates: start: 20111129, end: 20111206
  5. OFLOXACIN [Concomitant]
     Route: 048
     Dates: start: 20111219, end: 20111221

REACTIONS (4)
  - PYREXIA [None]
  - OESOPHAGITIS [None]
  - RETINAL VASCULAR OCCLUSION [None]
  - MALAISE [None]
